FAERS Safety Report 5738255-3 (Version None)
Quarter: 2008Q2

REPORT INFORMATION
  Report Type: 
  Country: None (occurrence: None)
  Receive Date: 20080514
  Receipt Date: 20080507
  Transmission Date: 20081010
  Serious: Yes (Other)
  Sender: FDA-Public Use
  Company Number: US-PFIZER INC-2008039661

PATIENT
  Sex: Male

DRUGS (2)
  1. LIPITOR [Suspect]
  2. CRESTOR [Suspect]

REACTIONS (1)
  - MUSCLE ATROPHY [None]
